FAERS Safety Report 9493271 (Version 2)
Quarter: 2013Q3

REPORT INFORMATION
  Report Type: Report from Study
  Country: CO (occurrence: CO)
  Receive Date: 20130902
  Receipt Date: 20130902
  Transmission Date: 20140515
  Serious: Yes (Death, Hospitalization)
  Sender: FDA-Public Use
  Company Number: PHHO2011CO00550

PATIENT
  Age: 72 Year
  Sex: Female
  Weight: 77 kg

DRUGS (7)
  1. ALISKIREN [Suspect]
     Indication: CARDIOVASCULAR DISORDER
     Route: 048
     Dates: start: 20091228, end: 20101226
  2. ENALAPRIL [Concomitant]
  3. HYDROCHLOROTHIAZIDE [Concomitant]
  4. NPH-INSULIN [Concomitant]
  5. METFORMIN [Concomitant]
  6. ASPIRIN [Concomitant]
  7. LOVASTATIN [Concomitant]

REACTIONS (3)
  - Death [Fatal]
  - Vomiting [Unknown]
  - Malaise [Unknown]
